FAERS Safety Report 14509785 (Version 2)
Quarter: 2018Q1

REPORT INFORMATION
  Report Type: Spontaneous
  Country: RU (occurrence: RU)
  Receive Date: 20180209
  Receipt Date: 20180212
  Transmission Date: 20180509
  Serious: Yes (Other)
  Sender: FDA-Public Use
  Company Number: RU-009507513-1802RUS000176

PATIENT
  Age: 74 Year
  Sex: Male

DRUGS (2)
  1. INTRON A [Suspect]
     Active Substance: INTERFERON ALFA-2B
     Indication: ANTIVIRAL TREATMENT
     Dosage: UNK
     Dates: start: 1997, end: 1997
  2. RIBAVIRIN. [Suspect]
     Active Substance: RIBAVIRIN
     Indication: ANTIVIRAL TREATMENT
     Dosage: UNK
     Route: 048
     Dates: start: 1997, end: 1997

REACTIONS (2)
  - Arrhythmia [Unknown]
  - Depression [Unknown]

NARRATIVE: CASE EVENT DATE: 1997
